FAERS Safety Report 7399374-1 (Version None)
Quarter: 2011Q2

REPORT INFORMATION
  Report Type: 
  Country: None (occurrence: None)
  Receive Date: 20110407
  Receipt Date: 20110329
  Transmission Date: 20111010
  Serious: Yes (Hospitalization)
  Sender: FDA-Public Use
  Company Number: JP-NOVOPROD-325157

PATIENT
  Age: 59 Year
  Sex: Male
  Weight: 58 kg

DRUGS (10)
  1. AMLODIN [Concomitant]
     Dosage: 5 MG, QD
     Route: 048
  2. PLETAL [Concomitant]
     Dosage: 50 MG, QD
     Route: 048
  3. VICTOZA [Suspect]
     Indication: TYPE 2 DIABETES MELLITUS
     Dosage: 0.3 MG, QD
     Route: 058
     Dates: start: 20110315
  4. CALTAN [Concomitant]
     Dosage: 2000 MG, QD
     Route: 048
     Dates: start: 20110112
  5. OXAROL [Concomitant]
     Dosage: 10 UG, QD
     Route: 042
     Dates: start: 20101225
  6. LANTUS [Concomitant]
     Dosage: 4 U, QD
     Route: 058
  7. LASIX [Concomitant]
     Dosage: 80 MG, QD
     Route: 048
  8. DIOVAN [Concomitant]
     Dosage: 160 MG, QD
     Route: 048
     Dates: start: 20110311
  9. OMEPRAL                            /00661201/ [Concomitant]
     Dosage: 10 MG, QD
     Route: 048
  10. NESPO [Concomitant]
     Dosage: 30 UG, QD
     Route: 042
     Dates: start: 20101223

REACTIONS (2)
  - LOSS OF CONSCIOUSNESS [None]
  - BLOOD GLUCOSE INCREASED [None]
